FAERS Safety Report 17485407 (Version 1)
Quarter: 2020Q1

REPORT INFORMATION
  Report Type: Spontaneous
  Country: ES (occurrence: ES)
  Receive Date: 20200302
  Receipt Date: 20200302
  Transmission Date: 20200409
  Serious: Yes (Other)
  Sender: FDA-Public Use
  Company Number: NVSC2020ES054652

PATIENT
  Age: 56 Year
  Sex: Female

DRUGS (6)
  1. FULVESTRANT. [Suspect]
     Active Substance: FULVESTRANT
     Indication: PRODUCT USED FOR UNKNOWN INDICATION
     Dosage: 500 MG, QMO (28 DAYS WITH EXTRA DOSE ON DAY 15 OF THE FIRST MONTH) EVERY FOUR WEEKS)
     Route: 030
     Dates: start: 20180518
  2. MORPHINE [Concomitant]
     Active Substance: MORPHINE
     Indication: ANALGESIC THERAPY
     Dosage: 20 MG, Q12H
     Route: 065
  3. AMITRIPTYLINE [Concomitant]
     Active Substance: AMITRIPTYLINE
     Indication: ANALGESIC THERAPY
     Dosage: 20 MG, QD
     Route: 065
  4. ZOLEDRONIC ACID. [Concomitant]
     Active Substance: ZOLEDRONIC ACID
     Indication: PRODUCT USED FOR UNKNOWN INDICATION
     Dosage: UNK
     Route: 065
     Dates: start: 201811
  5. PALBOCICLIB [Suspect]
     Active Substance: PALBOCICLIB
     Dosage: 100 MG
     Route: 048
     Dates: start: 20180607
  6. PALBOCICLIB [Suspect]
     Active Substance: PALBOCICLIB
     Indication: PRODUCT USED FOR UNKNOWN INDICATION
     Dosage: 125 MG, CYCLIC (CYCLIC 3 WEEKS ON, 1 WEEK OFF)
     Route: 048
     Dates: start: 20180607

REACTIONS (8)
  - Oesophagitis [Unknown]
  - Asthenia [Not Recovered/Not Resolved]
  - Mucosal inflammation [Unknown]
  - Decreased appetite [Recovered/Resolved]
  - Fracture [Unknown]
  - Dyspnoea [Recovered/Resolved]
  - Metastases to bone [Unknown]
  - Nausea [Recovered/Resolved]

NARRATIVE: CASE EVENT DATE: 201805
